FAERS Safety Report 7076851-4 (Version None)
Quarter: 2010Q4

REPORT INFORMATION
  Report Type: 
  Country: None (occurrence: None)
  Receive Date: 20101101
  Receipt Date: 20101025
  Transmission Date: 20110411
  Serious: Yes (Other)
  Sender: FDA-Public Use
  Company Number: US-BAYER-201038499NA

PATIENT
  Age: 45 Year
  Sex: Female

DRUGS (2)
  1. YAZ [Suspect]
     Route: 048
     Dates: start: 20060101, end: 20070101
  2. YASMIN [Suspect]
     Route: 048
     Dates: start: 20060101, end: 20070101

REACTIONS (2)
  - DEEP VEIN THROMBOSIS [None]
  - PAIN [None]
